FAERS Safety Report 5163576-5 (Version None)
Quarter: 2006Q4

REPORT INFORMATION
  Report Type: 
  Country: None (occurrence: None)
  Receive Date: 20061128
  Receipt Date: 20061128
  Transmission Date: 20070319
  Serious: Yes (Disabling, Other)
  Sender: FDA-Public Use
  Company Number: None

PATIENT
  Age: 28 Year
  Sex: Female
  Weight: 70.3075 kg

DRUGS (2)
  1. ZOLOFT [Suspect]
     Indication: ANXIETY
     Dosage: 100 MG 1 X DAY ORAL
     Route: 048
  2. ZOLOFT [Suspect]
     Indication: DEPRESSION
     Dosage: 100 MG 1 X DAY ORAL
     Route: 048

REACTIONS (4)
  - DRUG DEPENDENCE [None]
  - INFLUENZA LIKE ILLNESS [None]
  - MALAISE [None]
  - NERVOUS SYSTEM DISORDER [None]
